FAERS Safety Report 9316422 (Version 1)
Quarter: 2013Q2

REPORT INFORMATION
  Report Type: Report from Study
  Country: CA (occurrence: CA)
  Receive Date: 20130530
  Receipt Date: 20130530
  Transmission Date: 20140414
  Serious: Yes (Hospitalization, Other)
  Sender: FDA-Public Use
  Company Number: CA-ABBOTT-13P-028-1096598-00

PATIENT
  Sex: Male

DRUGS (2)
  1. HUMIRA [Suspect]
     Indication: ANKYLOSING SPONDYLITIS
     Route: 058
     Dates: start: 20071111, end: 201303
  2. HUMIRA [Suspect]
     Dosage: LATEST DOSE: 13-MAY-2013
     Route: 058

REACTIONS (1)
  - Umbilical hernia [Recovered/Resolved]
